FAERS Safety Report 6169792-8 (Version None)
Quarter: 2009Q2

REPORT INFORMATION
  Report Type: 
  Country: None (occurrence: None)
  Receive Date: 20090424
  Receipt Date: 20090414
  Transmission Date: 20091009
  Serious: Yes (Hospitalization, Disabling)
  Sender: FDA-Public Use
  Company Number: MSTR-NO-0811S-0122

PATIENT
  Age: 44 Year
  Sex: Female
  Weight: 50 kg

DRUGS (1)
  1. METASTRON [Suspect]
     Indication: METASTATIC PAIN
     Dosage: 3.2 ML, SINGLE DOSE, I.V.
     Route: 042
     Dates: start: 20081106, end: 20081106

REACTIONS (9)
  - ANAEMIA [None]
  - CONDITION AGGRAVATED [None]
  - FEELING HOT [None]
  - HUMERUS FRACTURE [None]
  - JOINT HYPEREXTENSION [None]
  - METASTATIC PAIN [None]
  - PATHOLOGICAL FRACTURE [None]
  - PLATELET COUNT DECREASED [None]
  - VOMITING [None]
